FAERS Safety Report 11164613 (Version 8)
Quarter: 2015Q3

REPORT INFORMATION
  Report Type: Spontaneous
  Country: US (occurrence: US)
  Receive Date: 20150604
  Receipt Date: 20150727
  Transmission Date: 20151125
  Serious: Yes (Other)
  Sender: FDA-Public Use
  Company Number: US-ROCHE-1586234

PATIENT
  Age: 29 Year
  Sex: Female

DRUGS (1)
  1. ERIVEDGE [Suspect]
     Active Substance: VISMODEGIB
     Indication: BASAL CELL CARCINOMA
     Dosage: LAST DOSE PRIOR TO EVENT: UNKNOWN
     Route: 065
     Dates: start: 20131126, end: 201502

REACTIONS (2)
  - Abortion spontaneous [Unknown]
  - Exposure via father [Unknown]
